FAERS Safety Report 5468848-2 (Version None)
Quarter: 2007Q3

REPORT INFORMATION
  Report Type: 
  Country: None (occurrence: None)
  Receive Date: 20070926
  Receipt Date: 20070914
  Transmission Date: 20080115
  Serious: Yes (Death, Other)
  Sender: FDA-Public Use
  Company Number: US-PFIZER INC-2007077551

PATIENT

DRUGS (2)
  1. SOLU-MEDROL [Suspect]
     Dates: start: 20070808, end: 20070809
  2. REBIF [Suspect]
     Indication: MULTIPLE SCLEROSIS
     Route: 058
     Dates: start: 20070517, end: 20070806

REACTIONS (1)
  - CEREBRAL HAEMORRHAGE [None]
